FAERS Safety Report 4822410-0 (Version None)
Quarter: 2005Q4

REPORT INFORMATION
  Report Type: 
  Country: None (occurrence: None)
  Receive Date: 20051104
  Receipt Date: 20051025
  Transmission Date: 20060501
  Serious: Yes (Life-Threatening, Hospitalization, Other)
  Sender: FDA-Public Use
  Company Number: DEWYE035006OCT05

PATIENT
  Age: 82 Year
  Sex: Female

DRUGS (10)
  1. VENLAFAXINE HCL [Suspect]
     Indication: DEPRESSION
     Dosage: 75  MG 1X PER 1 DAY ORAL
     Route: 048
     Dates: start: 20050801, end: 20050801
  2. VENLAFAXINE HCL [Suspect]
     Dosage: 37.5 MG 1 X PER 1 DAY ORAL
     Route: 048
     Dates: start: 20050801, end: 20050801
  3. LEVOTHYROXINE SODIUM [Concomitant]
  4. NOVALGIN (METAMIZOLE SODIUM) [Concomitant]
  5. CYNT (MOXONIDINE) [Concomitant]
  6. OXAZEPAM [Concomitant]
  7. MELPERONE (MELPERONE) [Concomitant]
  8. DYTIDE H (HYDROCHLOROTHIAZIDE/TRIAMTERENE) [Concomitant]
  9. CERTOPARIN SODIUM (HEPARIN-FRACTION, SODIUM SALT) [Concomitant]
  10. ZOPICLONE (ZOPICLONE) [Concomitant]

REACTIONS (3)
  - DEPRESSED LEVEL OF CONSCIOUSNESS [None]
  - HYPONATRAEMIA [None]
  - PNEUMONIA [None]
